FAERS Safety Report 8898377 (Version 1)
Quarter: 2012Q4

REPORT INFORMATION
  Report Type: 
  Country: US (occurrence: US)
  Receive Date: 20121109
  Receipt Date: 20121109
  Transmission Date: 20130627
  Serious: Yes (Other)
  Sender: FDA-Public Use
  Company Number: US-FRI-1000040203

PATIENT
  Age: 84 Year
  Sex: Female

DRUGS (12)
  1. NAMENDA [Suspect]
     Indication: AMNESIA
     Dosage: 5 mg
     Route: 048
     Dates: start: 201209, end: 2012
  2. NAMENDA [Suspect]
     Dosage: 5 mg BID
     Route: 048
     Dates: start: 2012, end: 2012
  3. NAMENDA [Suspect]
     Dosage: 5 mg AM, 10 mg PM
     Dates: start: 2012, end: 2012
  4. NAMENDA [Suspect]
     Indication: AMNESIA
     Dosage: 10 mg BID
     Route: 048
     Dates: start: 2012, end: 20121105
  5. PLAVIX [Concomitant]
  6. SIMVASTATIN [Concomitant]
  7. VITAMIN D3 [Concomitant]
  8. CALCIUM [Concomitant]
  9. COLACE [Concomitant]
  10. SENNA [Concomitant]
  11. MVI [Concomitant]
  12. ARMOUR [Concomitant]
     Indication: HYPOTHYROIDISM

REACTIONS (6)
  - Eye haemorrhage [Not Recovered/Not Resolved]
  - Gait disturbance [Not Recovered/Not Resolved]
  - Vision blurred [Not Recovered/Not Resolved]
  - Dizziness [Not Recovered/Not Resolved]
  - Fatigue [Not Recovered/Not Resolved]
  - Off label use [Recovered/Resolved]
